FAERS Safety Report 11820079 (Version 2)
Quarter: 2015Q4

REPORT INFORMATION
  Report Type: Report from Study
  Country: IT (occurrence: IT)
  Receive Date: 20151210
  Receipt Date: 20151215
  Transmission Date: 20160305
  Serious: Yes (Other)
  Sender: FDA-Public Use
  Company Number: IT-009507513-1512ITA002829

PATIENT

DRUGS (1)
  1. TEMOZOLOMIDE. [Suspect]
     Active Substance: TEMOZOLOMIDE
     Indication: PITUITARY TUMOUR
     Dosage: 150MG/M2/DAY FOR 5 DAYS EVERY 4 WEEKS (MAXIMUM 12 CYCLES)
     Route: 048

REACTIONS (1)
  - Cerebrovascular disorder [Unknown]
